FAERS Safety Report 20045977 (Version 1)
Quarter: 2021Q4

REPORT INFORMATION
  Report Type: Spontaneous
  Country: US (occurrence: None)
  Receive Date: 20211108
  Receipt Date: 20211108
  Transmission Date: 20220303
  Serious: No
  Sender: FDA-Public Use
  Company Number: None

PATIENT
  Sex: Male
  Weight: 76.70 kg

DRUGS (15)
  1. TABRECTA [Suspect]
     Active Substance: CAPMATINIB
     Indication: Bronchial carcinoma
     Dosage: FREQUENCY : TWICE A DAY;?
     Route: 048
  2. ALFUZOSIN [Concomitant]
     Active Substance: ALFUZOSIN
  3. AMLODIPINE [Concomitant]
     Active Substance: AMLODIPINE BESYLATE
  4. ASPIRIN [Concomitant]
     Active Substance: ASPIRIN
  5. BETAMETHASONE [Concomitant]
     Active Substance: BETAMETHASONE
  6. COUMADIN [Concomitant]
     Active Substance: WARFARIN SODIUM
  7. DIGOXIN [Concomitant]
     Active Substance: DIGOXIN
  8. FINASTERIDE [Concomitant]
     Active Substance: FINASTERIDE
  9. FUROSEMIDE [Concomitant]
     Active Substance: FUROSEMIDE
  10. LEVOTHYROXINE [Concomitant]
     Active Substance: LEVOTHYROXINE
  11. LOSARTAN [Concomitant]
     Active Substance: LOSARTAN
  12. METOPROLOL [Concomitant]
     Active Substance: METOPROLOL
  13. POTASSIUM CHLORIDE [Concomitant]
     Active Substance: POTASSIUM CHLORIDE
  14. PRAVASTATIN [Concomitant]
     Active Substance: PRAVASTATIN
  15. TYLENOL [Concomitant]
     Active Substance: ACETAMINOPHEN

REACTIONS (1)
  - Oedema peripheral [None]
